FAERS Safety Report 20306850 (Version 3)
Quarter: 2022Q2

REPORT INFORMATION
  Report Type: Report from Study
  Country: US (occurrence: US)
  Receive Date: 20220106
  Receipt Date: 20220405
  Transmission Date: 20220721
  Serious: Yes (Death, Other)
  Sender: FDA-Public Use
  Company Number: US-ACADIA PHARMACEUTICALS INC.-ACA-2021-PIM-004347

PATIENT
  Age: 78 Year
  Sex: Female

DRUGS (21)
  1. NUPLAZID [Suspect]
     Active Substance: PIMAVANSERIN TARTRATE
     Indication: Parkinson^s disease psychosis
     Dosage: 34 MILLIGRAM, QD
     Route: 065
     Dates: start: 202108
  2. ALPRAZOLAM [Concomitant]
     Active Substance: ALPRAZOLAM
     Dosage: TAKE 0.25 MG DAILY AS NEEDED BEFORE PROCEDURES (STRAIGHT CATHETER)
     Route: 048
  3. DILAUDID [Concomitant]
     Active Substance: HYDROMORPHONE HYDROCHLORIDE
     Indication: Pain
     Dosage: TAKE 0.5 TABLET EVERY HOUR AS NEEDED
     Route: 048
     Dates: start: 20211202
  4. DILAUDID [Concomitant]
     Active Substance: HYDROMORPHONE HYDROCHLORIDE
     Indication: Dyspnoea
  5. ATIVAN [Concomitant]
     Active Substance: LORAZEPAM
     Indication: Anxiety
     Dosage: 0.5 MG EVERY HOUR AS NEEDED
     Route: 048
     Dates: start: 20211202
  6. ATIVAN [Concomitant]
     Active Substance: LORAZEPAM
     Indication: Dyspnoea
  7. PHENOBARBITAL [Concomitant]
     Active Substance: PHENOBARBITAL
     Indication: Delirium
     Dosage: 100 MG/ML; TAKE 0.5 ML(50 MG TOTAL) EVERY 2 HOUR AS NEEDED
     Route: 048
     Dates: start: 20211201
  8. TYLENOL [Concomitant]
     Active Substance: ACETAMINOPHEN
     Indication: Pyrexia
     Dosage: 650 MG; PLACE 1 SUPPOSITORY EVERY 4 HOUR AS NEEDED
     Route: 054
     Dates: start: 20211202
  9. TYLENOL [Concomitant]
     Active Substance: ACETAMINOPHEN
     Indication: Pain
  10. ALUMINUM HYDROXIDE\MAGNESIUM HYDROXIDE [Concomitant]
     Active Substance: ALUMINUM HYDROXIDE\MAGNESIUM HYDROXIDE
     Indication: Abdominal discomfort
     Dosage: 200-200-20 MG/ML; 30 ML EVERY 4 HOUR AS NEEDED
     Route: 048
  11. DULCOLAX (BISACODYL) [Concomitant]
     Active Substance: BISACODYL
     Indication: Constipation
     Dosage: PLACE 1 SUPPOSITORY DAILY AS NEEDED; 10 MG
     Route: 054
     Dates: start: 20211202
  12. DIMETHICONE AND ZINC OXIDE [Concomitant]
     Active Substance: DIMETHICONE\ZINC OXIDE
     Dosage: APPLY 1 DOSE TWICE A DAY TO AFFECTED AREA
     Route: 061
  13. ROBINUL [Concomitant]
     Active Substance: GLYCOPYRROLATE
     Indication: Respiratory disorder
     Dosage: 1 TABLET EVERY 4 HOUR AS NEEDED
     Route: 048
     Dates: start: 20211202
  14. HALDOL [Concomitant]
     Active Substance: HALOPERIDOL
     Indication: Nausea
     Dosage: TALE 1.25 ML(2.5 MG TOTAL) EVERY 4 HOUR AS NEEDED
     Route: 048
     Dates: start: 20211202
  15. HALDOL [Concomitant]
     Active Substance: HALOPERIDOL
     Indication: Vomiting
  16. HALDOL [Concomitant]
     Active Substance: HALOPERIDOL
     Indication: Delirium
  17. MILK OF MAGNESIA [Concomitant]
     Active Substance: MAGNESIUM HYDROXIDE
     Indication: Constipation
     Dosage: 400 MG 15 ML ; 30 ML AS NEEDED
     Route: 048
  18. CALMOSEPTINE [MENTHOL;ZINC OXIDE] [Concomitant]
     Dosage: 0.44.20.5%; APPLY 1 DOSSE 2 TIMES DAILY AS NEEDED APPLY TO REDDENED AREA TWICE DAILY AS NEEDED
     Route: 061
  19. ZOFRAN [Concomitant]
     Active Substance: ONDANSETRON HYDROCHLORIDE
     Indication: Nausea
     Dosage: PLACE 1 TABLET (4 MG TOTAL) UNDER THE TONGUE EVERY 8 HOURS AS NEEDED
     Route: 060
     Dates: start: 20171227
  20. ZOFRAN [Concomitant]
     Active Substance: ONDANSETRON HYDROCHLORIDE
     Indication: Vomiting
  21. FLEET [SODIUM PHOSPHATE DIBASIC;SODIUM PHOSPHATE MONOBASIC] [Concomitant]
     Indication: Constipation
     Dosage: PLACE 1 ENEMA DAILY AS NEEDED
     Route: 054

REACTIONS (4)
  - Parkinson^s disease [Recovered/Resolved]
  - Cognitive disorder [Recovered/Resolved]
  - General physical health deterioration [Recovered/Resolved]
  - COVID-19 [Recovered/Resolved]

NARRATIVE: CASE EVENT DATE: 20210801
